FAERS Safety Report 6056771-4 (Version None)
Quarter: 2009Q1

REPORT INFORMATION
  Report Type: 
  Country: None (occurrence: None)
  Receive Date: 20090126
  Receipt Date: 20090126
  Transmission Date: 20090719
  Serious: No
  Sender: FDA-Public Use
  Company Number: None

PATIENT
  Age: 50 Year
  Sex: Male
  Weight: 74.8435 kg

DRUGS (3)
  1. ZICAM GEL MATRIXX [Suspect]
     Indication: NASOPHARYNGITIS
     Dosage: 1 SQUIRT PER NOSTRIL 4 HRS APART NASAL
     Route: 045
     Dates: start: 20081222, end: 20090101
  2. ZICAM GEL MATRIXX [Suspect]
     Indication: NASOPHARYNGITIS
     Dosage: 1 SQUIRT PER NOSTRIL 4 HRS APART NASAL
     Route: 045
     Dates: start: 20090111, end: 20090124
  3. AFRIN [Concomitant]

REACTIONS (7)
  - DYSGEUSIA [None]
  - NASAL DISCOMFORT [None]
  - NASOPHARYNGITIS [None]
  - PAROSMIA [None]
  - RHINALGIA [None]
  - RHINORRHOEA [None]
  - SNEEZING [None]
